FAERS Safety Report 8244878-2 (Version None)
Quarter: 2012Q1

REPORT INFORMATION
  Report Type: 
  Country: None (occurrence: None)
  Receive Date: 20120329
  Receipt Date: 20110727
  Transmission Date: 20120608
  Serious: No
  Sender: FDA-Public Use
  Company Number: US-MYLANLABS-2011S1015715

PATIENT
  Sex: Male

DRUGS (4)
  1. NORCO [Concomitant]
     Indication: PAIN
     Route: 048
  2. NAPROXEN (ALEVE) [Concomitant]
     Indication: PAIN
     Route: 048
     Dates: start: 20110712
  3. FENTANYL-100 [Suspect]
     Indication: PAIN
     Dosage: QOD
     Route: 062
     Dates: start: 20110101
  4. SOMA [Concomitant]
     Indication: PAIN
     Route: 048

REACTIONS (1)
  - DRY EYE [None]
